FAERS Safety Report 18394663 (Version 1)
Quarter: 2020Q4

REPORT INFORMATION
  Report Type: Spontaneous
  Country: GB (occurrence: GB)
  Receive Date: 20201017
  Receipt Date: 20201017
  Transmission Date: 20210114
  Serious: Yes (Death)
  Sender: FDA-Public Use
  Company Number: NVSC2020GB278161

PATIENT
  Age: 84 Year
  Sex: Female

DRUGS (1)
  1. ETANERCEPT [Suspect]
     Active Substance: ETANERCEPT
     Indication: RHEUMATOID ARTHRITIS
     Dosage: 25 MG
     Route: 065
     Dates: start: 20020315

REACTIONS (5)
  - Gastrointestinal haemorrhage [Fatal]
  - Pulmonary embolism [Fatal]
  - Pneumonia [Fatal]
  - Disseminated tuberculosis [Fatal]
  - Deep vein thrombosis [Fatal]
